FAERS Safety Report 7519583-8 (Version None)
Quarter: 2011Q2

REPORT INFORMATION
  Report Type: 
  Country: None (occurrence: None)
  Receive Date: 20110602
  Receipt Date: 20110517
  Transmission Date: 20111010
  Serious: Yes (Hospitalization)
  Sender: FDA-Public Use
  Company Number: A0843953A

PATIENT
  Age: 34 Year
  Sex: Male
  Weight: 145.5 kg

DRUGS (9)
  1. ZOCOR [Concomitant]
  2. NOVOLIN 70/30 [Concomitant]
  3. AVANDIA [Suspect]
     Indication: DIABETES MELLITUS
     Dosage: 4MG PER DAY
     Route: 048
     Dates: start: 20010701, end: 20020321
  4. TOPROL-XL [Concomitant]
  5. GLUCOPHAGE [Concomitant]
  6. SPIRONOLACTONE [Concomitant]
  7. LASIX [Concomitant]
  8. ACCUPRIL [Concomitant]
  9. ALLEGRA [Concomitant]

REACTIONS (4)
  - CONDITION AGGRAVATED [None]
  - CARDIOMYOPATHY [None]
  - CARDIAC DISORDER [None]
  - CARDIAC FAILURE CONGESTIVE [None]
